FAERS Safety Report 15074099 (Version 4)
Quarter: 2018Q4

REPORT INFORMATION
  Report Type: Report from Study
  Country: None (occurrence: GE)
  Receive Date: 20180627
  Receipt Date: 20180814
  Transmission Date: 20190204
  Serious: Yes (Death, Hospitalization)
  Sender: FDA-Public Use
  Company Number: GE-MELINTA THERAPEUTICS, INC.-MTP201806-000040

PATIENT
  Age: 72 Year
  Sex: Male
  Weight: 78.2 kg

DRUGS (8)
  1. DELAFLOXACIN [Suspect]
     Active Substance: DELAFLOXACIN MEGLUMINE
     Indication: PNEUMONIA
     Dosage: 900 MG
     Route: 048
     Dates: start: 20180530, end: 20180603
  2. DEXAMETHASONE. [Concomitant]
     Active Substance: DEXAMETHASONE
     Indication: PNEUMONIA
     Dosage: 3 ML
     Route: 042
     Dates: start: 20180527, end: 20180530
  3. DICLOFENAC [Concomitant]
     Active Substance: DICLOFENAC
     Indication: PNEUMONIA
     Dosage: 3 ML
     Route: 030
     Dates: start: 20180525, end: 20180526
  4. AMBROXOL [Concomitant]
     Active Substance: AMBROXOL
     Indication: PNEUMONIA
     Dosage: 30 ML
     Route: 048
     Dates: start: 20180525, end: 20180530
  5. PANTOPRAZOL [Concomitant]
     Active Substance: PANTOPRAZOLE SODIUM
     Indication: PROPHYLAXIS
     Dosage: 40 MG
     Route: 042
  6. KETOTIFEN [Concomitant]
     Active Substance: KETOTIFEN
     Indication: PNEUMONIA
     Dosage: 1 MG
     Route: 048
     Dates: start: 20180524, end: 20180529
  7. BUDESONIDE. [Concomitant]
     Active Substance: BUDESONIDE
     Indication: PNEUMONIA
     Dosage: 1 MG
     Route: 048
     Dates: start: 20180524, end: 20180530
  8. DELAFLOXACIN MEGLUMINE [Suspect]
     Active Substance: DELAFLOXACIN MEGLUMINE
     Indication: PNEUMONIA
     Dosage: 600 MG
     Route: 042
     Dates: start: 20180524, end: 20180530

REACTIONS (1)
  - Agranulocytosis [Fatal]

NARRATIVE: CASE EVENT DATE: 20180607
